FAERS Safety Report 23169186 (Version 1)
Quarter: 2023Q4

REPORT INFORMATION
  Report Type: Spontaneous
  Country: US (occurrence: US)
  Receive Date: 20231110
  Receipt Date: 20231110
  Transmission Date: 20240110
  Serious: No
  Sender: FDA-Public Use
  Company Number: US-drreddys-SPO/USA/23/0179122

PATIENT
  Age: 52 Year
  Sex: Male

DRUGS (7)
  1. TACROLIMUS [Suspect]
     Active Substance: TACROLIMUS
     Indication: Immunosuppressant drug therapy
  2. ETRAVIRINE [Concomitant]
     Active Substance: ETRAVIRINE
     Indication: Psychotherapy
  3. MYCOPHENOLATE MOFETIL [Concomitant]
     Active Substance: MYCOPHENOLATE MOFETIL
     Indication: Immunosuppressant drug therapy
  4. RITONAVIR [Concomitant]
     Active Substance: RITONAVIR
     Indication: Psychotherapy
  5. DARUNAVIR [Concomitant]
     Active Substance: DARUNAVIR
     Indication: Psychotherapy
  6. PREDNISONE [Concomitant]
     Active Substance: PREDNISONE
     Indication: Immunosuppressant drug therapy
  7. RALTEGRAVIR [Concomitant]
     Active Substance: RALTEGRAVIR
     Indication: Psychotherapy

REACTIONS (1)
  - Toxicity to various agents [Unknown]
